FAERS Safety Report 17674000 (Version 2)
Quarter: 2020Q2

REPORT INFORMATION
  Report Type: Report from Study
  Country: None (occurrence: US)
  Receive Date: 20200415
  Receipt Date: 20200618
  Transmission Date: 20200714
  Serious: Yes (Hospitalization, Other)
  Sender: FDA-Public Use
  Company Number: US-ABBVIE-20K-163-3364960-00

PATIENT
  Sex: Male

DRUGS (1)
  1. HUMIRA [Suspect]
     Active Substance: ADALIMUMAB
     Indication: COLITIS ULCERATIVE
     Dosage: CITRATE FREE
     Route: 058

REACTIONS (10)
  - Diarrhoea [Not Recovered/Not Resolved]
  - Pain [Not Recovered/Not Resolved]
  - Hypertension [Not Recovered/Not Resolved]
  - Intestinal obstruction [Recovered/Resolved]
  - Nausea [Unknown]
  - Intestinal obstruction [Not Recovered/Not Resolved]
  - Colectomy [Unknown]
  - Balance disorder [Unknown]
  - Adjustment disorder with depressed mood [Unknown]
  - Diabetes mellitus [Not Recovered/Not Resolved]
